FAERS Safety Report 10378755 (Version 1)
Quarter: 2014Q1

REPORT INFORMATION
  Report Type: Spontaneous
  Country: US (occurrence: None)
  Receive Date: 20140306
  Receipt Date: 20140306
  Transmission Date: 20141002
  Serious: Yes (Other)
  Sender: FDA-Public Use
  Company Number: 163-21880-13021843

PATIENT
  Sex: Male
  Weight: 83.46 kg

DRUGS (12)
  1. REVLIMID (LENALIDOMIDE) (10 MILLIGRAM, CAPSULES) [Suspect]
     Indication: MYELODYSPLASTIC SYNDROME
     Route: 048
     Dates: start: 20121211, end: 20130201
  2. VELCADE (BORTEZOMIB) (UNKNOWN) [Suspect]
     Indication: PRODUCT USED FOR UNKNOWN INDICATION
  3. PROCRIT (ERYTHROPOIETIN) [Concomitant]
  4. TYLENOL XS )PARACETAMOL) [Concomitant]
  5. VITAMIN D (ERGOCALCIFEROL) [Concomitant]
  6. PREDNISONE [Concomitant]
  7. CETIRIZINE [Concomitant]
  8. PROVENTIL (SALBUTAMOL) [Concomitant]
  9. HYDROCODONE/APAP (VICODIN) [Concomitant]
  10. ARTHROTEC [Concomitant]
  11. OMEPRAZOLE [Concomitant]
  12. VIDAZA (AZACITIDINE) [Concomitant]

REACTIONS (3)
  - Pancytopenia [None]
  - Fatigue [None]
  - Bronchitis [None]
